FAERS Safety Report 8970683 (Version 1)
Quarter: 2012Q4

REPORT INFORMATION
  Report Type: 
  Country: US (occurrence: US)
  Receive Date: 20121218
  Receipt Date: 20121218
  Transmission Date: 20130627
  Serious: No
  Sender: FDA-Public Use
  Company Number: US-BRISTOL-MYERS SQUIBB COMPANY-16509093

PATIENT
  Age: 62 Year
  Sex: Male
  Weight: 84 kg

DRUGS (4)
  1. ABILIFY TABS [Suspect]
     Indication: DEPRESSION
  2. ABILIFY TABS [Suspect]
     Indication: OBSESSIVE-COMPULSIVE DISORDER
  3. ABILIFY TABS [Suspect]
     Indication: ANXIETY
  4. CELEXA [Suspect]

REACTIONS (2)
  - Insomnia [Unknown]
  - Flatulence [Unknown]
